FAERS Safety Report 9919645 (Version 2)
Quarter: 2014Q1

REPORT INFORMATION
  Report Type: Spontaneous
  Country: MX (occurrence: MX)
  Receive Date: 20140224
  Receipt Date: 20140224
  Transmission Date: 20141002
  Serious: Yes (Other)
  Sender: FDA-Public Use
  Company Number: PHHY2013MX005186

PATIENT
  Age: 54 Year
  Sex: Male

DRUGS (10)
  1. ONBREZ [Suspect]
     Indication: CHRONIC OBSTRUCTIVE PULMONARY DISEASE
     Dosage: UNK UKN, DAILY
  2. MIFLONIDE [Suspect]
     Indication: ASTHMATIC CRISIS
     Dosage: 2 DF, (2 CAPSULES PER DAY)
     Route: 055
  3. MIFLONIDE [Suspect]
     Indication: CHRONIC OBSTRUCTIVE PULMONARY DISEASE
  4. AMBROXOL [Concomitant]
     Indication: INCREASED UPPER AIRWAY SECRETION
     Dosage: UNK UKN, UNK
     Dates: start: 201210
  5. OMEPRAZOL [Concomitant]
     Indication: GASTRITIS
     Dosage: 1 UKN, DAILY
  6. OMEPRAZOL [Concomitant]
     Indication: ABDOMINAL DISCOMFORT
  7. NORFABEN M [Concomitant]
     Indication: DIABETES MELLITUS
     Dosage: 1 UKN, DAILY
  8. OXYGEN [Concomitant]
     Dosage: UNK UKN, UNK
  9. CONTINUOUS POSITIVE AIRWAY PRESSURE [Concomitant]
     Indication: DYSPNOEA
     Dosage: UNK UKN, UNK
  10. PROCORALAN [Concomitant]
     Indication: HEART RATE INCREASED
     Dosage: 2 UKN, DAILY

REACTIONS (6)
  - Arrhythmia [Not Recovered/Not Resolved]
  - Fibromyalgia [Not Recovered/Not Resolved]
  - Respiratory disorder [Recovered/Resolved]
  - Sleep disorder [Not Recovered/Not Resolved]
  - Bronchitis [Recovered/Resolved]
  - Arthralgia [Unknown]
